FAERS Safety Report 9898366 (Version 2)
Quarter: 2014Q1

REPORT INFORMATION
  Report Type: Spontaneous
  Country: US (occurrence: US)
  Receive Date: 20140214
  Receipt Date: 20140214
  Transmission Date: 20141002
  Serious: No
  Sender: FDA-Public Use
  Company Number: US-GILEAD-2011-0042163

PATIENT
  Sex: Female

DRUGS (5)
  1. LETAIRIS [Suspect]
     Indication: PULMONARY HYPERTENSION
     Dosage: 5 MG, UNK
     Route: 048
     Dates: start: 20101209, end: 20110810
  2. FLOVENT [Concomitant]
     Indication: ASTHMA
  3. PROAIR [Concomitant]
     Indication: ASTHMA
  4. REVATIO [Concomitant]
     Indication: PULMONARY HYPERTENSION
  5. OXYGEN [Concomitant]

REACTIONS (4)
  - Pruritus [Recovered/Resolved]
  - Pruritus [Recovered/Resolved]
  - Hypersensitivity [Unknown]
  - Rash [Recovered/Resolved]
